FAERS Safety Report 6701158-1 (Version None)
Quarter: 2010Q2

REPORT INFORMATION
  Report Type: 
  Country: None (occurrence: None)
  Receive Date: 20100428
  Receipt Date: 20100428
  Transmission Date: 20101027
  Serious: Yes (Life-Threatening, Hospitalization, Disabling)
  Sender: FDA-Public Use
  Company Number: None

PATIENT
  Age: 57 Year
  Sex: Female
  Weight: 70.3075 kg

DRUGS (3)
  1. SEROQUEL [Suspect]
     Indication: DEPRESSION
     Dosage: 100 MG ONCE DAILY
     Dates: start: 20070301, end: 20100221
  2. SEROQUEL [Suspect]
     Indication: PANIC ATTACK
     Dosage: 100 MG ONCE DAILY
     Dates: start: 20070301, end: 20100221
  3. SEROQUEL [Suspect]
     Indication: POST-TRAUMATIC STRESS DISORDER
     Dosage: 100 MG ONCE DAILY
     Dates: start: 20070301, end: 20100221

REACTIONS (12)
  - AMNESIA [None]
  - BLOOD GLUCOSE FLUCTUATION [None]
  - DEPRESSION [None]
  - IMPAIRED DRIVING ABILITY [None]
  - LIVER DISORDER [None]
  - LOSS OF CONTROL OF LEGS [None]
  - NERVOUS SYSTEM DISORDER [None]
  - PANCREATIC DISORDER [None]
  - RENAL DISORDER [None]
  - SUICIDAL IDEATION [None]
  - TYPE 1 DIABETES MELLITUS [None]
  - WEIGHT INCREASED [None]
